FAERS Safety Report 6762814-2 (Version None)
Quarter: 2010Q2

REPORT INFORMATION
  Report Type: 
  Country: None (occurrence: None)
  Receive Date: 20100607
  Receipt Date: 20100602
  Transmission Date: 20101027
  Serious: Yes (Other)
  Sender: FDA-Public Use
  Company Number: 2010SP030976

PATIENT
  Sex: Female

DRUGS (5)
  1. CORICIDIN [Suspect]
     Indication: FEELING COLD
     Dosage: 4 MG; Q6H; PO, 4 MG; ONCE; PO
     Route: 048
     Dates: start: 20100529
  2. CORICIDIN [Suspect]
     Indication: FEELING COLD
     Dosage: 4 MG; Q6H; PO, 4 MG; ONCE; PO
     Route: 048
     Dates: start: 20100530
  3. ANTIDEPRESSANTS [Suspect]
     Indication: DRUG USE FOR UNKNOWN INDICATION
  4. SUDAFED 12 HOUR [Concomitant]
  5. ADVIL LIQUI-GELS [Concomitant]

REACTIONS (3)
  - DIZZINESS [None]
  - HALLUCINATION, VISUAL [None]
  - VERTIGO [None]
